FAERS Safety Report 5572243-5 (Version None)
Quarter: 2007Q4

REPORT INFORMATION
  Report Type: 
  Country: None (occurrence: None)
  Receive Date: 20071221
  Receipt Date: 20071213
  Transmission Date: 20080405
  Serious: Yes (Other)
  Sender: FDA-Public Use
  Company Number: US-PFIZER INC-2007105065

PATIENT
  Sex: Female

DRUGS (1)
  1. DETROL LA [Suspect]
     Indication: BLADDER DISORDER
     Dosage: TEXT:UNKNOWN   TDD:UNKNOWN

REACTIONS (2)
  - ANGLE CLOSURE GLAUCOMA [None]
  - OPEN ANGLE GLAUCOMA [None]
